FAERS Safety Report 12578410 (Version 1)
Quarter: 2016Q3

REPORT INFORMATION
  Report Type: Spontaneous
  Country: US (occurrence: None)
  Receive Date: 20160713
  Receipt Date: 20160713
  Transmission Date: 20161109
  Serious: Yes (Other)
  Sender: FDA-Public Use
  Company Number: 2016HINSPO0245

PATIENT
  Age: 84 Year
  Sex: Male
  Weight: 68 kg

DRUGS (7)
  1. VITAMIN-D (VITAMIN-D) [Concomitant]
  2. VITAMIN-C (ASCORBIC ACID) [Concomitant]
  3. METOPROLOL (METOPROLOL) [Concomitant]
     Active Substance: METOPROLOL
  4. MORPHINE (MORPHINE) [Concomitant]
     Active Substance: MORPHINE
  5. HYDROMORPHONE (HYDROMORPHONE HYDROCHLORIDE ) [Concomitant]
     Active Substance: HYDROMORPHONE
  6. FINASTERIDE (FINASTERIDE) TABLET, 5MG [Suspect]
     Active Substance: FINASTERIDE
     Indication: BENIGN PROSTATIC HYPERPLASIA
     Route: 048
     Dates: start: 201506, end: 201512
  7. OMEPRAZOLE (OMEPRAZOLE) [Concomitant]
     Active Substance: OMEPRAZOLE

REACTIONS (1)
  - Gynaecomastia [None]

NARRATIVE: CASE EVENT DATE: 201509
